FAERS Safety Report 10227382 (Version 2)
Quarter: 2014Q2

REPORT INFORMATION
  Report Type: Spontaneous
  Country: US (occurrence: US)
  Receive Date: 20140610
  Receipt Date: 20140620
  Transmission Date: 20141212
  Serious: Yes (Other)
  Sender: FDA-Public Use
  Company Number: US-PFIZER INC-2014156748

PATIENT
  Age: 63 Year
  Sex: Male
  Weight: 99.77 kg

DRUGS (6)
  1. CHANTIX [Suspect]
     Indication: SMOKING CESSATION THERAPY
     Dosage: 1 MG, 2X/DAY
     Route: 048
     Dates: start: 20140418
  2. ZOCOR [Concomitant]
     Dosage: 40 MG, 1X/DAY
  3. PRILOSEC [Concomitant]
     Indication: DYSPEPSIA
     Dosage: 20 MG, UNK
  4. BABY ASPIRIN [Concomitant]
     Indication: CARDIAC DISORDER
     Dosage: UNK
  5. NORCO [Concomitant]
     Dosage: 7.5/325, 4X/DAY
  6. XANAX [Concomitant]
     Dosage: 1 MG, 2X/DAY

REACTIONS (3)
  - Depression [Not Recovered/Not Resolved]
  - Skin lesion [Recovered/Resolved]
  - Skin exfoliation [Recovered/Resolved]
